FAERS Safety Report 7590868-2 (Version None)
Quarter: 2011Q3

REPORT INFORMATION
  Report Type: 
  Country: None (occurrence: None)
  Receive Date: 20110705
  Receipt Date: 20110630
  Transmission Date: 20111222
  Serious: Yes (Life-Threatening)
  Sender: FDA-Public Use
  Company Number: US-B.I. PHARMACEUTICALS,INC./RIDGEFIELD-2011-BP-13576BP

PATIENT
  Sex: Female
  Weight: 86.6 kg

DRUGS (2)
  1. IBUPROFEN [Concomitant]
     Indication: PAIN
     Dosage: 200 MG
     Route: 048
     Dates: start: 20100101
  2. BI 10773 OR SITAGLIPTIN [Suspect]
     Indication: TYPE 2 DIABETES MELLITUS
     Dosage: 10 MG
     Route: 048
     Dates: start: 20110211, end: 20110519

REACTIONS (2)
  - BLOOD CREATININE INCREASED [None]
  - RENAL FAILURE ACUTE [None]
